FAERS Safety Report 7475676-5 (Version None)
Quarter: 2011Q2

REPORT INFORMATION
  Report Type: 
  Country: None (occurrence: None)
  Receive Date: 20110512
  Receipt Date: 20110506
  Transmission Date: 20111010
  Serious: Yes (Life-Threatening, Hospitalization)
  Sender: FDA-Public Use
  Company Number: US-ROCHE-772850

PATIENT
  Sex: Female
  Weight: 86.2 kg

DRUGS (13)
  1. VINBLASTINE SULFATE [Suspect]
     Dosage: DAY1 AND 15 OF 28 DAY CYCLE.LAST DOSE PRIOR TO SAE: 07 APR 2011.
     Route: 042
     Dates: start: 20110323
  2. ADVIL LIQUI-GELS [Concomitant]
     Dosage: AS NEEDED.
     Route: 048
  3. AVASTIN [Suspect]
     Dosage: DAY, 1 AND 15, 28 CYCLE. LAST DOSE PRIOR TO SAE: 07 APR 2011.
     Route: 042
     Dates: start: 20110323, end: 20110428
  4. DACARBAZINE [Suspect]
     Dosage: DAYS 1 AND 15 OF 28 DAY CYCLE.LAST DOSE PRIOR TO SAE: 07 APR 2011.
     Route: 042
     Dates: start: 20110323
  5. DECADRON [Concomitant]
     Dosage: AS NEEDED.
     Route: 048
  6. ZOFRAN [Concomitant]
     Dosage: AS NEEDED.
     Route: 048
  7. PRISTIQ [Concomitant]
     Route: 048
  8. LAMICTAL [Concomitant]
     Route: 048
  9. AVASTIN [Suspect]
     Dosage: 1 AND 15 OF 28 DAY CYCLE.
     Route: 042
     Dates: start: 20101228
  10. DOXORUBICIN HCL [Suspect]
     Dosage: DAYS 1 AND 15 OF 28 BAY CYCLE.LAST DOSE PRIOR TO SAE: 07 APR 2011.
     Route: 042
     Dates: start: 20110323
  11. ZYPREXA [Concomitant]
     Route: 048
  12. BLEOMYCIN SULFATE [Suspect]
     Dosage: DAY 1 AND DAY 15 OF 28 DAY CYCLE.LAST DOSE PRIOR TO SAE: 07 APR 2011.
     Route: 042
     Dates: start: 20110323
  13. ATIVAN [Concomitant]
     Dosage: AS PER NEED.
     Route: 048

REACTIONS (2)
  - HYPOXIA [None]
  - FEBRILE NEUTROPENIA [None]
